FAERS Safety Report 20495702 (Version 1)
Quarter: 2022Q1

REPORT INFORMATION
  Report Type: Spontaneous
  Country: US (occurrence: US)
  Receive Date: 20220221
  Receipt Date: 20220221
  Transmission Date: 20220423
  Serious: Yes (Hospitalization)
  Sender: FDA-Public Use
  Company Number: US-MACLEODS PHARMACEUTICALS US LTD-MAC2022034447

PATIENT

DRUGS (5)
  1. OLANZAPINE [Suspect]
     Active Substance: OLANZAPINE
     Indication: Bipolar disorder
     Dosage: 15 MILLIGRAM, QD
     Route: 065
     Dates: start: 1999
  2. VALPROIC ACID [Concomitant]
     Active Substance: VALPROIC ACID
     Indication: Bipolar disorder
     Dosage: 750 MILLIGRAM, QD
     Route: 065
     Dates: start: 1994
  3. CARBAMAZEPINE [Concomitant]
     Active Substance: CARBAMAZEPINE
     Indication: Bipolar disorder
     Dosage: 200 MILLIGRAM, BID
     Route: 065
     Dates: start: 1994
  4. HYDROCHLOROTHIAZIDE\TRIAMTERENE [Concomitant]
     Active Substance: HYDROCHLOROTHIAZIDE\TRIAMTERENE
     Indication: Product used for unknown indication
     Dosage: 1 DOSAGE FORM, QD
     Route: 065
     Dates: start: 1994
  5. ESTROGENS, CONJUGATED [Concomitant]
     Active Substance: ESTROGENS, CONJUGATED
     Indication: Product used for unknown indication
     Dosage: 0.625 MILLIGRAM, QD
     Route: 065
     Dates: start: 1994

REACTIONS (3)
  - Diabetes mellitus [Recovered/Resolved]
  - Pancreatitis acute [Unknown]
  - Diabetic ketoacidosis [Recovered/Resolved]
